FAERS Safety Report 14088979 (Version 1)
Quarter: 2017Q4

REPORT INFORMATION
  Report Type: Spontaneous
  Country: US (occurrence: US)
  Receive Date: 20171013
  Receipt Date: 20171013
  Transmission Date: 20180321
  Serious: Yes (Other)
  Sender: FDA-Public Use
  Company Number: US-PRINSTON PHARMACEUTICAL INC.-2017PRN00475

PATIENT
  Sex: Female

DRUGS (1)
  1. VALSARTAN. [Suspect]
     Active Substance: VALSARTAN
     Dosage: UNK

REACTIONS (5)
  - Feeling abnormal [Unknown]
  - Cardiac failure [Unknown]
  - Oligomenorrhoea [Unknown]
  - Cyst [Unknown]
  - Gastrointestinal disorder [Unknown]
